FAERS Safety Report 4841704-6 (Version None)
Quarter: 2005Q4

REPORT INFORMATION
  Report Type: 
  Country: None (occurrence: None)
  Receive Date: 20051130
  Receipt Date: 20051013
  Transmission Date: 20060501
  Serious: Yes (Hospitalization)
  Sender: FDA-Public Use
  Company Number: JP-SANOFI-SYNTHELABO-A01200507116

PATIENT
  Age: 67 Year
  Sex: Male
  Weight: 60 kg

DRUGS (4)
  1. MYSLEE [Suspect]
     Indication: INSOMNIA
     Route: 048
     Dates: start: 20050922, end: 20050922
  2. CEFAZOLIN [Concomitant]
     Dosage: 4 G
     Route: 041
     Dates: start: 20050921, end: 20050928
  3. PROSTANDIN [Concomitant]
     Dosage: 120 MCG
     Route: 041
     Dates: start: 20050922, end: 20050928
  4. SERENACE [Concomitant]
     Dosage: 10 MG
     Route: 041
     Dates: start: 20050922, end: 20050922

REACTIONS (7)
  - AGGRESSION [None]
  - ANASTOMOTIC COMPLICATION [None]
  - DELIRIUM [None]
  - DRUG INEFFECTIVE [None]
  - INSOMNIA [None]
  - RESTLESSNESS [None]
  - VASCULAR OCCLUSION [None]
